FAERS Safety Report 23932540 (Version 1)
Quarter: 2024Q2

REPORT INFORMATION
  Report Type: Spontaneous
  Country: US (occurrence: None)
  Receive Date: 20240531
  Receipt Date: 20240531
  Transmission Date: 20240715
  Serious: Yes (Hospitalization)
  Sender: FDA-Public Use
  Company Number: None

PATIENT
  Age: 15 Year
  Sex: Female
  Weight: 58.5 kg

DRUGS (8)
  1. ASPARLAS [Suspect]
     Active Substance: CALASPARGASE PEGOL-MKNL
     Indication: B-cell type acute leukaemia
     Dosage: 3750 IU INTERNATIONAL UNIT(S) EVERY 4-8 WEEKS INTRAVENOUS?
     Route: 042
     Dates: start: 20231121, end: 20240527
  2. VINCRISTINE [Concomitant]
     Active Substance: VINCRISTINE
     Dates: start: 20231118
  3. METHOTREXATE [Concomitant]
     Active Substance: METHOTREXATE
     Dates: start: 20231124
  4. PREDNISONE [Concomitant]
     Active Substance: PREDNISONE
     Dates: start: 20231118, end: 20231214
  5. CYCLOPHOSPHAMIDE [Concomitant]
     Active Substance: CYCLOPHOSPHAMIDE
     Dates: start: 20231222, end: 20240126
  6. CYTARABINE [Concomitant]
     Active Substance: CYTARABINE
     Dates: start: 20231222, end: 20240205
  7. MERCAPTOPURINE [Concomitant]
     Active Substance: MERCAPTOPURINE
     Dates: start: 20231222, end: 20240208
  8. DOXORUBICIN [Concomitant]
     Active Substance: DOXORUBICIN
     Dates: start: 20240524

REACTIONS (6)
  - Feeling hot [None]
  - Nausea [None]
  - Hyperhidrosis [None]
  - Ocular hyperaemia [None]
  - Hypotension [None]
  - Infusion related reaction [None]

NARRATIVE: CASE EVENT DATE: 20240527
